FAERS Safety Report 22642814 (Version 1)
Quarter: 2023Q2

REPORT INFORMATION
  Report Type: Spontaneous
  Country: US (occurrence: US)
  Receive Date: 20230627
  Receipt Date: 20230627
  Transmission Date: 20230721
  Serious: No
  Sender: FDA-Public Use
  Company Number: US-drreddys-SPO/USA/23/0166005

PATIENT
  Age: 31 Year
  Sex: Female

DRUGS (1)
  1. ZENATANE [Suspect]
     Active Substance: ISOTRETINOIN
     Indication: Product used for unknown indication
     Dosage: RMA ISSUE DATE: 18 JANUARY 2023 09:36:28 AM, 20 FEBRUARY 2023 01:35:17 PM AND 21 APRIL 2023 09:01:57

REACTIONS (2)
  - Visual impairment [Unknown]
  - Headache [Unknown]
